FAERS Safety Report 7033008-0 (Version None)
Quarter: 2010Q4

REPORT INFORMATION
  Report Type: 
  Country: None (occurrence: None)
  Receive Date: 20101007
  Receipt Date: 20100930
  Transmission Date: 20110411
  Serious: Yes (Hospitalization, Other)
  Sender: FDA-Public Use
  Company Number: DE-PFIZER INC-2010116016

PATIENT
  Age: 32 Year
  Sex: Male
  Weight: 72 kg

DRUGS (10)
  1. VFEND [Suspect]
     Indication: ANTIFUNGAL PROPHYLAXIS
     Dosage: 400 MG, 1X/DAY
     Route: 042
     Dates: start: 20100319, end: 20100613
  2. VFEND [Suspect]
     Dosage: 400 MG, 1X/DAY
     Route: 048
     Dates: start: 20100719, end: 20100803
  3. CYCLOSPORINE [Suspect]
     Dosage: UNK
     Dates: start: 20100324, end: 20100627
  4. METHYLPREDNISOLONE [Suspect]
     Indication: GRAFT VERSUS HOST DISEASE
     Dosage: 48MG - 0 - 16MG
     Route: 048
     Dates: start: 20100424
  5. MYCOPHENOLATE MOFETIL [Concomitant]
     Indication: GRAFT VERSUS HOST DISEASE
     Dosage: 500 MG, 2X/DAY
     Route: 048
     Dates: start: 20100528
  6. ACICLOVIR [Concomitant]
     Dosage: 400 MG, 3X/DAY
     Route: 048
  7. PENTACARINAT ^AVENTIS^ [Concomitant]
     Dosage: UNK
     Route: 055
  8. INSULIN [Concomitant]
     Route: 058
  9. TORASEMIDE [Concomitant]
     Dosage: 10 MG, 1X/DAY
     Route: 048
  10. KALINOR-BRAUSETABLETTEN [Concomitant]
     Dosage: 1 DF, 1X/DAY

REACTIONS (6)
  - ACUTE GRAFT VERSUS HOST DISEASE IN LIVER [None]
  - DIABETES MELLITUS [None]
  - EPSTEIN-BARR VIRUS INFECTION [None]
  - MENTAL DISORDER DUE TO A GENERAL MEDICAL CONDITION [None]
  - MYOPATHY [None]
  - PITUITARY-DEPENDENT CUSHING'S SYNDROME [None]
